FAERS Safety Report 14179465 (Version 1)
Quarter: 2017Q4

REPORT INFORMATION
  Report Type: Spontaneous
  Country: US (occurrence: US)
  Receive Date: 20171111
  Receipt Date: 20171111
  Transmission Date: 20180321
  Serious: No
  Sender: FDA-Public Use
  Company Number: US-TEVA-824278ACC

PATIENT
  Sex: Female

DRUGS (2)
  1. NUVIGIL GENERIC [Suspect]
     Active Substance: ARMODAFINIL
     Route: 065
  2. PROVIGIL GENERIC [Suspect]
     Active Substance: MODAFINIL

REACTIONS (1)
  - Drug hypersensitivity [Unknown]
